FAERS Safety Report 8048694-6 (Version None)
Quarter: 2012Q1

REPORT INFORMATION
  Report Type: 
  Country: None (occurrence: None)
  Receive Date: 20120117
  Receipt Date: 20120109
  Transmission Date: 20120608
  Serious: Yes (Other)
  Sender: FDA-Public Use
  Company Number: US-BAYER-2012-003020

PATIENT
  Age: -1 Year

DRUGS (1)
  1. BRONKAID [Suspect]
     Indication: ASTHMA PROPHYLAXIS
     Route: 048

REACTIONS (2)
  - INSOMNIA [None]
  - HEART RATE INCREASED [None]
